FAERS Safety Report 14281807 (Version 2)
Quarter: 2018Q1

REPORT INFORMATION
  Report Type: Report from Study
  Country: US (occurrence: US)
  Receive Date: 20171213
  Receipt Date: 20180226
  Transmission Date: 20180508
  Serious: Yes (Other)
  Sender: FDA-Public Use
  Company Number: US-JNJFOC-20170928288

PATIENT
  Age: 63 Year
  Sex: Male

DRUGS (9)
  1. IMBRUVICA [Suspect]
     Active Substance: IBRUTINIB
     Indication: CHRONIC GRAFT VERSUS HOST DISEASE
     Route: 048
     Dates: start: 20170816
  2. FOSAMAX [Concomitant]
     Active Substance: ALENDRONATE SODIUM
  3. PREDNISONE. [Concomitant]
     Active Substance: PREDNISONE
  4. LISINOPRIL. [Concomitant]
     Active Substance: LISINOPRIL
  5. IMBRUVICA [Suspect]
     Active Substance: IBRUTINIB
     Indication: CHRONIC GRAFT VERSUS HOST DISEASE
     Route: 048
     Dates: start: 20170817
  6. COREG [Concomitant]
     Active Substance: CARVEDILOL
  7. ATORVASTATIN [Concomitant]
     Active Substance: ATORVASTATIN
  8. CLOBETASOL [Concomitant]
     Active Substance: CLOBETASOL
  9. METFORMIN [Concomitant]
     Active Substance: METFORMIN HYDROCHLORIDE

REACTIONS (8)
  - Petechiae [Unknown]
  - Flushing [Unknown]
  - Tachycardia [Unknown]
  - Nasopharyngitis [Unknown]
  - Lung disorder [Unknown]
  - Haemorrhage [Unknown]
  - Haemorrhage subcutaneous [Not Recovered/Not Resolved]
  - Lethargy [Unknown]

NARRATIVE: CASE EVENT DATE: 2017
